FAERS Safety Report 20579842 (Version 1)
Quarter: 2022Q1

REPORT INFORMATION
  Report Type: Spontaneous
  Country: CA (occurrence: CA)
  Receive Date: 20220310
  Receipt Date: 20220310
  Transmission Date: 20220424
  Serious: Yes (Life-Threatening, Other)
  Sender: FDA-Public Use
  Company Number: CA-PFIZER INC-202200358462

PATIENT
  Age: 10 Year
  Sex: Female
  Weight: 40 kg

DRUGS (29)
  1. CYTARABINE [Suspect]
     Active Substance: CYTARABINE
     Indication: Acute myeloid leukaemia
     Dosage: 1320 MG, 2X/DAY (1 EVERY 12 HOURS)
     Route: 042
  2. MITOXANTRONE [Suspect]
     Active Substance: MITOXANTRONE HYDROCHLORIDE
     Indication: Acute myeloid leukaemia
     Dosage: 16 MG
     Route: 042
  3. ACETAMINOPHEN [Concomitant]
     Active Substance: ACETAMINOPHEN
     Dosage: UNK
  4. ALTEPLASE [Concomitant]
     Active Substance: ALTEPLASE
     Dosage: UNK
  5. AMPHOTERICIN B [Concomitant]
     Active Substance: AMPHOTERICIN B
     Dosage: UNK
  6. DEXMEDETOMIDINE [Concomitant]
     Active Substance: DEXMEDETOMIDINE
     Dosage: UNK
  7. DIMENHYDRINATE [Concomitant]
     Active Substance: DIMENHYDRINATE
     Dosage: UNK
  8. DIPHENHYDRAMINE [Concomitant]
     Active Substance: DIPHENHYDRAMINE
     Dosage: UNK
  9. EPINEPHRINE [Concomitant]
     Active Substance: EPINEPHRINE
  10. FAMOTIDINE [Concomitant]
     Active Substance: FAMOTIDINE
     Dosage: UNK
  11. FUROSEMIDE [Concomitant]
     Active Substance: FUROSEMIDE
     Dosage: UNK
     Route: 065
  12. HYDROXYZINE [Concomitant]
     Active Substance: HYDROXYZINE HYDROCHLORIDE
     Dosage: UNK
  13. KETAJECT [Concomitant]
     Dosage: UNK
  14. MAGNESIUM [Concomitant]
     Active Substance: MAGNESIUM
     Dosage: UNK
  15. MELATONIN [Concomitant]
     Active Substance: MELATONIN
  16. MEROPENEM [Concomitant]
     Active Substance: MEROPENEM
  17. METOCLOPRAMIDE [Concomitant]
     Active Substance: METOCLOPRAMIDE
  18. MILRINONE [Concomitant]
     Active Substance: MILRINONE
     Dosage: UNK
  19. MORPHINE [Concomitant]
     Active Substance: MORPHINE
     Dosage: UNK
  20. MYCAMINE [Concomitant]
     Active Substance: MICAFUNGIN SODIUM
  21. NAPROXEN [Concomitant]
     Active Substance: NAPROXEN
     Dosage: UNK
  22. ONDANSETRON [Concomitant]
     Active Substance: ONDANSETRON
     Dosage: UNK
  23. PIPERACILLIN SODIUM\TAZOBACTAM SODIUM [Concomitant]
     Active Substance: PIPERACILLIN SODIUM\TAZOBACTAM SODIUM
  24. POLYETHYLENE GLYCOLS [Concomitant]
     Active Substance: POLYETHYLENE GLYCOLS
     Dosage: UNK
  25. POTASSIUM [Concomitant]
     Active Substance: POTASSIUM
     Dosage: UNK
  26. TRANEXAMIC ACID [Concomitant]
     Active Substance: TRANEXAMIC ACID
     Dosage: UNK
  27. SULFAMETHOXAZOLE\TRIMETHOPRIM [Concomitant]
     Active Substance: SULFAMETHOXAZOLE\TRIMETHOPRIM
     Route: 065
  28. VANCOMYCIN [Concomitant]
     Active Substance: VANCOMYCIN
     Dosage: UNK
  29. ZINECARD [Concomitant]
     Active Substance: DEXRAZOXANE HYDROCHLORIDE
     Dosage: UNK

REACTIONS (3)
  - Aplastic anaemia [Unknown]
  - Pulmonary haemorrhage [Unknown]
  - Sepsis [Unknown]
